APPROVED DRUG PRODUCT: CEFAZOLIN SODIUM
Active Ingredient: CEFAZOLIN SODIUM
Strength: EQ 20GM BASE/VIAL
Dosage Form/Route: INJECTABLE;INJECTION
Application: A065306 | Product #002
Applicant: ACS DOBFAR SPA
Approved: Aug 18, 2014 | RLD: No | RS: Yes | Type: RX